FAERS Safety Report 13981865 (Version 1)
Quarter: 2017Q3

REPORT INFORMATION
  Report Type: Spontaneous
  Country: US (occurrence: None)
  Receive Date: 20170915
  Receipt Date: 20170915
  Transmission Date: 20171128
  Serious: Yes (Hospitalization)
  Sender: FDA-Public Use
  Company Number: None

PATIENT
  Age: 63 Year
  Sex: Female

DRUGS (6)
  1. LISINOPRIL. [Concomitant]
     Active Substance: LISINOPRIL
  2. NEULASTA [Suspect]
     Active Substance: PEGFILGRASTIM
     Indication: AGRANULOCYTOSIS
     Route: 058
     Dates: start: 20170510
  3. CALCIUM [Concomitant]
     Active Substance: CALCIUM
  4. METOPROLOL TARTRATE. [Concomitant]
     Active Substance: METOPROLOL TARTRATE
  5. PREDNISONE. [Concomitant]
     Active Substance: PREDNISONE
  6. OSTEO BI FLEX [Concomitant]

REACTIONS (1)
  - Myocardial infarction [None]

NARRATIVE: CASE EVENT DATE: 201708
